FAERS Safety Report 8089850-0 (Version None)
Quarter: 2012Q1

REPORT INFORMATION
  Report Type: 
  Country: None (occurrence: None)
  Receive Date: 20120128
  Receipt Date: 20110620
  Transmission Date: 20120608
  Serious: No
  Sender: FDA-Public Use
  Company Number: US-ABBOTT-11P-163-0733965-00

PATIENT
  Age: 54 Year
  Sex: Female

DRUGS (4)
  1. PRISTIQ [Concomitant]
     Indication: DEPRESSION
     Dosage: DAILY
     Route: 048
  2. HUMIRA [Suspect]
     Indication: RHEUMATOID ARTHRITIS
     Dates: start: 20110501
  3. LORAZEPAM [Concomitant]
     Indication: ANXIETY
     Route: 048
  4. AMBIEN [Concomitant]
     Indication: INSOMNIA
     Route: 048

REACTIONS (2)
  - MUSCULAR WEAKNESS [None]
  - PAIN IN EXTREMITY [None]
